FAERS Safety Report 16093521 (Version 1)
Quarter: 2019Q1

REPORT INFORMATION
  Report Type: Spontaneous
  Country: JP (occurrence: JP)
  Receive Date: 20190320
  Receipt Date: 20190320
  Transmission Date: 20190418
  Serious: Yes (Hospitalization, Other)
  Sender: FDA-Public Use
  Company Number: JP-GLAXOSMITHKLINE-JP2019JPN008681

PATIENT
  Age: 65 Year
  Sex: Male

DRUGS (3)
  1. AVOLVE [Suspect]
     Active Substance: DUTASTERIDE
     Dosage: 0.5 MG, QD
     Route: 048
     Dates: end: 20190118
  2. URIEF [Suspect]
     Active Substance: SILODOSIN
     Dosage: 4 MG, BID
     Route: 048
     Dates: end: 20190118
  3. CERNILTON [Concomitant]
     Active Substance: HERBALS
     Dosage: 2 DF, BID

REACTIONS (2)
  - Azoospermia [Unknown]
  - Prostatectomy [Recovered/Resolved]

NARRATIVE: CASE EVENT DATE: 20190116
